FAERS Safety Report 16480677 (Version 1)
Quarter: 2019Q2

REPORT INFORMATION
  Report Type: Spontaneous
  Country: US (occurrence: US)
  Receive Date: 20190626
  Receipt Date: 20190626
  Transmission Date: 20190711
  Serious: No
  Sender: FDA-Public Use
  Company Number: US-GALDERMA-US19017868

PATIENT
  Age: 53 Year
  Sex: Female

DRUGS (7)
  1. PROACTIV GREEN TEA MOISTURIZER [Concomitant]
     Active Substance: COSMETICS
     Indication: ACNE
     Route: 061
     Dates: start: 20190306, end: 20190315
  2. PROACTIV MD DEEP CLEANSING FACE WASH [Concomitant]
     Active Substance: COSMETICS
     Indication: ACNE
     Route: 061
     Dates: start: 20190306, end: 20190315
  3. MULTI VITAMIN [Concomitant]
     Active Substance: VITAMINS
  4. BIOTIN [Concomitant]
     Active Substance: BIOTIN
  5. PROBIOTIC [Concomitant]
     Active Substance: PROBIOTICS NOS
  6. PROACTIV MD ADAPALENE ACNE TREATMENT [Suspect]
     Active Substance: ADAPALENE
     Indication: ACNE
     Dosage: 0.1%
     Route: 061
     Dates: start: 20190306, end: 20190315
  7. PROACTIV MD DAILY OIL CONTROL SPF 30 [Suspect]
     Active Substance: AVOBENZONE\OCTISALATE\OCTOCRYLENE
     Indication: ACNE
     Route: 061
     Dates: start: 20190306, end: 20190315

REACTIONS (4)
  - Acne [Recovering/Resolving]
  - Skin burning sensation [Recovering/Resolving]
  - Pain of skin [Recovering/Resolving]
  - Skin exfoliation [Recovering/Resolving]

NARRATIVE: CASE EVENT DATE: 20190308
